FAERS Safety Report 9964111 (Version 3)
Quarter: 2014Q3

REPORT INFORMATION
  Report Type: Spontaneous
  Country: KR (occurrence: KR)
  Receive Date: 20140305
  Receipt Date: 20140701
  Transmission Date: 20150326
  Serious: Yes (Other)
  Sender: FDA-Public Use
  Company Number: KR-JNJFOC-20140217295

PATIENT

DRUGS (1)
  1. INFLIXIMAB, RECOMBINANT [Suspect]
     Active Substance: INFLIXIMAB
     Indication: ANKYLOSING SPONDYLITIS
     Dosage: AT WEEKS 0, 2, AND 6 (DOSE LOADING??PHASE) AND AT WEEKS 14, 22, AND 30 (MAINTENANCE PHASE)
     Route: 042

REACTIONS (1)
  - Tuberculosis [Unknown]
